FAERS Safety Report 10066985 (Version 1)
Quarter: 2014Q2

REPORT INFORMATION
  Report Type: Spontaneous
  Country: NO (occurrence: NO)
  Receive Date: 20140409
  Receipt Date: 20140409
  Transmission Date: 20141212
  Serious: Yes (Death)
  Sender: FDA-Public Use
  Company Number: PHHY2014NO038226

PATIENT
  Age: 83 Year
  Sex: Female

DRUGS (4)
  1. RISPERIDONE [Suspect]
     Indication: COGNITIVE DISORDER
     Dosage: 1 MG, DAILY
     Route: 048
     Dates: start: 201310, end: 20140203
  2. HALDOL [Suspect]
     Indication: COGNITIVE DISORDER
     Dosage: 1 MG, BID
     Route: 048
     Dates: start: 201302
  3. REMERON [Concomitant]
     Indication: DEPRESSED MOOD
     Dosage: 30 MG, QD
     Route: 048
  4. SIMVASTATIN [Concomitant]
     Indication: HYPERCHOLESTEROLAEMIA
     Dosage: 40 MG, QD
     Route: 048

REACTIONS (1)
  - Cerebral infarction [Fatal]
